FAERS Safety Report 8796121 (Version 1)
Quarter: 2012Q4

REPORT INFORMATION
  Report Type: 
  Country: PL (occurrence: PL)
  Receive Date: 20120919
  Receipt Date: 20120919
  Transmission Date: 20130627
  Serious: Yes (Hospitalization)
  Sender: FDA-Public Use
  Company Number: PL-B.I. PHARMACEUTICALS,INC./RIDGEFIELD-2012-AP-00750AP

PATIENT
  Age: 64 Year
  Sex: Female

DRUGS (1)
  1. TRAJENTA [Suspect]

REACTIONS (1)
  - Cerebral haemorrhage [Unknown]
